FAERS Safety Report 22387668 (Version 1)
Quarter: 2023Q2

REPORT INFORMATION
  Report Type: Spontaneous
  Country: US (occurrence: US)
  Receive Date: 20230531
  Receipt Date: 20230531
  Transmission Date: 20230721
  Serious: No
  Sender: FDA-Public Use
  Company Number: US-drreddys-SPO/USA/23/0165169

PATIENT
  Age: 16 Year

DRUGS (1)
  1. ZENATANE [Suspect]
     Active Substance: ISOTRETINOIN
     Indication: Product used for unknown indication
     Dosage: RMA ISSUE DATE: 31 JANUARY 2023 03:09:23 PM, 28 FEBRUARY 2023 04:51:02 PM,  28 MARCH 2023 2:25:02 PM

REACTIONS (1)
  - Arthralgia [Unknown]
